FAERS Safety Report 7362069-4 (Version None)
Quarter: 2011Q1

REPORT INFORMATION
  Report Type: 
  Country: None (occurrence: None)
  Receive Date: 20110318
  Receipt Date: 20110311
  Transmission Date: 20110831
  Serious: Yes (Death, Other)
  Sender: FDA-Public Use
  Company Number: US-PFIZER INC-2006152020

PATIENT
  Sex: Male

DRUGS (1)
  1. GABAPENTIN [Suspect]
     Indication: PAIN
     Dates: start: 20011201

REACTIONS (7)
  - SELF-INJURIOUS IDEATION [None]
  - ANXIETY [None]
  - IRRITABILITY [None]
  - COMPLETED SUICIDE [None]
  - GUN SHOT WOUND [None]
  - AGITATION [None]
  - SUICIDAL IDEATION [None]
